FAERS Safety Report 7705780-5 (Version None)
Quarter: 2011Q3

REPORT INFORMATION
  Report Type: 
  Country: None (occurrence: None)
  Receive Date: 20110824
  Receipt Date: 20110824
  Transmission Date: 20111222
  Serious: Yes (Hospitalization)
  Sender: FDA-Public Use
  Company Number: None

PATIENT
  Sex: Female

DRUGS (1)
  1. VENOFER [Suspect]
     Indication: ANAEMIA
     Dosage: 200MG
     Route: 041
     Dates: start: 20110811, end: 20110811

REACTIONS (4)
  - CONFUSIONAL STATE [None]
  - CHEST PAIN [None]
  - DIZZINESS [None]
  - SYNCOPE [None]
